FAERS Safety Report 6578354-X (Version None)
Quarter: 2010Q1

REPORT INFORMATION
  Report Type: 
  Country: None (occurrence: None)
  Receive Date: 20100211
  Receipt Date: 20100205
  Transmission Date: 20100710
  Serious: Yes (Other)
  Sender: FDA-Public Use
  Company Number: US-PFIZER INC-2010016381

PATIENT
  Sex: Female

DRUGS (2)
  1. XALATAN [Suspect]
     Indication: INTRAOCULAR PRESSURE TEST ABNORMAL
     Dosage: 1 DROP EACH EYE DAILY
     Route: 047
     Dates: start: 20070101
  2. ALPHAGAN [Concomitant]

REACTIONS (1)
  - CATARACT [None]
